FAERS Safety Report 12635933 (Version 9)
Quarter: 2017Q4

REPORT INFORMATION
  Report Type: Spontaneous
  Country: US (occurrence: US)
  Receive Date: 20160809
  Receipt Date: 20171116
  Transmission Date: 20180320
  Serious: No
  Sender: FDA-Public Use
  Company Number: US-PFIZER INC-2016376263

PATIENT
  Age: 66 Year
  Sex: Female

DRUGS (51)
  1. LYRICA [Suspect]
     Active Substance: PREGABALIN
     Dosage: 200 MG, 3X/DAY (EVERY 8 HOURS)
     Route: 048
     Dates: start: 20171109
  2. CYMBALTA [Suspect]
     Active Substance: DULOXETINE HYDROCHLORIDE
     Indication: DIABETIC NEUROPATHY
     Dosage: 30 MG, TWICE DAILY
     Route: 048
     Dates: start: 2015
  3. SODIUM BICARBONATE. [Concomitant]
     Active Substance: SODIUM BICARBONATE
     Indication: GASTRIC DISORDER
     Dosage: 650 MG, UNK
  4. TRAZODONE [Concomitant]
     Active Substance: TRAZODONE HYDROCHLORIDE
     Indication: SLEEP DISORDER
     Dosage: 50MG, ONE AT NIGHT
  5. LOMOTIL [Concomitant]
     Active Substance: ATROPINE SULFATE\DIPHENOXYLATE HYDROCHLORIDE
     Indication: DIARRHOEA
     Dosage: AS NEEDED, 4 TIMES A DAY
     Route: 048
  6. REGLAN [Concomitant]
     Active Substance: METOCLOPRAMIDE HYDROCHLORIDE
     Dosage: 5 MG, 4X/DAY(BEFORE MEALS AND AT BEDTIME)
     Route: 048
  7. DRISDOL [Concomitant]
     Active Substance: ERGOCALCIFEROL
     Dosage: 50000 IU, WEEKLY (1 TIME A WEEK)
     Route: 048
  8. DRISDOL [Concomitant]
     Active Substance: ERGOCALCIFEROL
     Dosage: 50000 IU, WEEKLY (TAKE 1 CAPSULE (50,000 UNITS) BY MOUTH 2 TIMES A WEEK)
     Route: 048
  9. ZINC. [Concomitant]
     Active Substance: ZINC
     Dosage: 160 MG, 1X/DAY
     Route: 048
  10. LYRICA [Suspect]
     Active Substance: PREGABALIN
     Indication: NERVE COMPRESSION
     Dosage: 200 MG, 3X/DAY (EVERY 8 HOURS)
     Route: 048
     Dates: start: 20171024
  11. CREON [Concomitant]
     Active Substance: PANCRELIPASE AMYLASE\PANCRELIPASE LIPASE\PANCRELIPASE PROTEASE
     Indication: SEPSIS
     Dosage: 6000 MG, UNK
  12. CREON [Concomitant]
     Active Substance: PANCRELIPASE AMYLASE\PANCRELIPASE LIPASE\PANCRELIPASE PROTEASE
     Dosage: 6000 MG, 3X/DAY (WITH-MEALS, AM, NOON, PM)
     Route: 048
  13. VITAMIN B12 [Concomitant]
     Active Substance: CYANOCOBALAMIN
     Dosage: 1000 UG/ML, WEEKLY(INJECT 1,000 MCG INTRAMUSCULARLY ON SUNDAY)
  14. FOLIC ACID. [Concomitant]
     Active Substance: FOLIC ACID
     Dosage: 1 MG, DAILY
  15. XIFAXAN [Concomitant]
     Active Substance: RIFAXIMIN
     Dosage: 550 MG, 2X/DAY (FOR 14 DAYS)
     Route: 048
  16. NITRO-BID [Concomitant]
     Active Substance: NITROGLYCERIN
     Dosage: UNK, AS NEEDED (APPLY 1 INCH TO THE SKIN EVERY 6 HOURS AS NEEDED)
  17. EFFEXOR [Concomitant]
     Active Substance: VENLAFAXINE HYDROCHLORIDE
     Dosage: 75 MG, 2X/DAY
     Route: 048
  18. SEROQUEL [Concomitant]
     Active Substance: QUETIAPINE FUMARATE
     Indication: DEPRESSION
     Dosage: 100 MG, 1X/DAY (TAKE 100 MG BY MOUTH EVERY NIGHT AT BEDTIME)
     Route: 048
  19. VITAMIN D3 [Concomitant]
     Active Substance: CHOLECALCIFEROL
     Indication: VITAMIN D DECREASED
     Dosage: 1000 MG, DAILY
  20. ZOFRAN [Concomitant]
     Active Substance: ONDANSETRON HYDROCHLORIDE
     Indication: VOMITING
  21. KLOR-CON M20 [Concomitant]
     Active Substance: POTASSIUM CHLORIDE
     Dosage: 40 MEQ, 3X/DAY [2 TABLETS,AM, PM, BEDTIME]
     Route: 048
  22. FLAGYL [Concomitant]
     Active Substance: METRONIDAZOLE\METRONIDAZOLE HYDROCHLORIDE
     Dosage: 500 MG, UNK
  23. LYRICA [Suspect]
     Active Substance: PREGABALIN
     Indication: RAYNAUD^S PHENOMENON
     Dosage: 200 MG, 3X/DAY (EVERY 8 HOURS)
     Route: 048
     Dates: start: 20161020
  24. CYMBALTA [Suspect]
     Active Substance: DULOXETINE HYDROCHLORIDE
     Dosage: 30 MG, 1X/DAY
     Route: 048
  25. SEROQUEL [Concomitant]
     Active Substance: QUETIAPINE FUMARATE
     Indication: OBSESSIVE-COMPULSIVE DISORDER
     Dosage: 100 MG, 2X/DAY [0.5 TABLETS]
     Route: 048
  26. PROTONIX [Concomitant]
     Active Substance: PANTOPRAZOLE SODIUM
     Dosage: 40 MG, 1X/DAY (TAKE 1 TABLET (40 MG) BY MOUTH 1 TIME A DAY IN THE MORNING)
     Route: 048
  27. CARAFATE [Concomitant]
     Active Substance: SUCRALFATE
     Dosage: 1 G, 3X/DAY (BEFORE MEALS/ ON AN EMPTY STOMACH 1 HOUR BEFORE MEALS AND AT BEDTIME]
     Route: 048
  28. ZOFRAN [Concomitant]
     Active Substance: ONDANSETRON HYDROCHLORIDE
     Indication: NAUSEA
     Dosage: 4 MG, AS NEEDED (TAKE 1 TABLET (4 MG TOTAL) BY MOUTH 3 TIMES A DAY AS NEEDED FOR NAUSEA OR VOMITING)
     Route: 048
  29. VITAMIN B12 [Concomitant]
     Active Substance: CYANOCOBALAMIN
     Dosage: 1000 UG, 1X/DAY [ONE TIME PER DAY]
     Route: 048
  30. DESYREL [Concomitant]
     Active Substance: TRAZODONE HYDROCHLORIDE
     Dosage: 50 MG, 1X/DAY (EVERY NIGHT AT BEDTIME, BEDTIME)
     Route: 048
  31. NITRO-BID [Concomitant]
     Active Substance: NITROGLYCERIN
     Dosage: UNK, 4X/DAY [1 INCH TO THE SKIN EVERY 6 HOURS]
     Route: 061
  32. KETALAR [Concomitant]
     Active Substance: KETAMINE HYDROCHLORIDE
     Dosage: 100 MG, DAILY (TAKE 1 CAPSULE (20 MG) BY MOUTH (NOT LIQUID) 5 TIMES DAILY)
     Route: 048
  33. CANNABIS [Concomitant]
     Active Substance: CANNABIS SATIVA SUBSP. INDICA TOP
     Dosage: UNK, AS NEEDED
  34. PAXIL [Concomitant]
     Active Substance: PAROXETINE HYDROCHLORIDE
     Indication: DEPRESSION
     Dosage: 20 MG, 1X/DAY(EVERY DAY)
     Route: 048
  35. POTASSIUM CHLORIDE. [Concomitant]
     Active Substance: POTASSIUM CHLORIDE
     Indication: BLOOD POTASSIUM DECREASED
     Dosage: 40 MEQ, 3X/DAY (TAKE 2 TABLETS (40 MEQ TOTAL) BY MOUTH 3 TIMES 2 A DAY )
     Route: 048
  36. PROBIOTIC [Concomitant]
     Active Substance: PROBIOTICS NOS
     Indication: GASTRIC DISORDER
     Dosage: 1 DF, 1X/DAY (AM)
     Route: 048
  37. SEROQUEL [Concomitant]
     Active Substance: QUETIAPINE FUMARATE
     Indication: SLEEP DISORDER
     Dosage: 200MG AT NIGHT
     Route: 048
  38. CARAFATE [Concomitant]
     Active Substance: SUCRALFATE
     Indication: GASTRIC DISORDER
     Dosage: 1 G, DAILY(1GM A DAY)
  39. ULTRAM [Concomitant]
     Active Substance: TRAMADOL HYDROCHLORIDE
     Dosage: 50 MG, 3X/DAY (DO NOT EXCEED 150 MG/DAY, AM PM BEDTIME)
     Route: 048
  40. PROTONIX [Concomitant]
     Active Substance: PANTOPRAZOLE SODIUM
     Indication: GASTRIC DISORDER
     Dosage: 40 MG, DAILY (IN THE MORNING,AM)
     Route: 048
  41. MIRALAX [Concomitant]
     Active Substance: POLYETHYLENE GLYCOL 3350
     Dosage: UNK, 1X/DAY (TAKE 1 PACKET, DISSOLVE IN 4 TO 8 OUNCES OF WATER, JUICE, SODA, COFFEE, TEA.)
     Route: 048
  42. TYLENOL [Concomitant]
     Active Substance: ACETAMINOPHEN
     Indication: PAIN
     Dosage: 1000 MG, AS NEEDED(EVERY 6 HOURS)
     Route: 048
  43. VALIUM [Concomitant]
     Active Substance: DIAZEPAM
     Indication: MUSCLE SPASMS
     Dosage: 2 MG, AS NEEDED, (3 TIMES A DAY FOR UP TO 15 DOSES)
     Route: 048
  44. LYRICA [Suspect]
     Active Substance: PREGABALIN
     Indication: DIABETIC NEUROPATHY
     Dosage: 50 MG, 2X/DAY
     Route: 048
     Dates: start: 2015
  45. ULTRAM [Concomitant]
     Active Substance: TRAMADOL HYDROCHLORIDE
     Dosage: 50MG TABLETS, TWO TIME A DAY EVERY 12 HOURS
  46. ULTRAM [Concomitant]
     Active Substance: TRAMADOL HYDROCHLORIDE
     Dosage: 50 MG, AS NEEDED (TAKE 1-2 TABLETS (50-100 MG) BY MOUTH 3 TIMES A DAY AS NEEDED FOR MODERATE PAIN)
     Route: 048
  47. VITAMIN D2 [Concomitant]
     Active Substance: ERGOCALCIFEROL
     Dosage: 50,000 UNITS, ONCE A WEEK
     Route: 048
  48. VITAMIN D3 [Concomitant]
     Active Substance: CHOLECALCIFEROL
     Dosage: 2000 IU, 1X/DAY [1 TIME PER DAY]
  49. MOTRIN [Concomitant]
     Active Substance: IBUPROFEN
     Indication: PAIN
     Dosage: 400 MG, AS NEEDED(EVERY 6 HOURS)
     Route: 048
  50. DRISDOL [Concomitant]
     Active Substance: ERGOCALCIFEROL
     Dosage: 50000 IU, 1X/DAY
     Route: 048
  51. VIBRAMYCIN [Concomitant]
     Active Substance: DOXYCYCLINE
     Dosage: 100 MG, 1X/DAY [1 TIME PER DAY]
     Route: 048

REACTIONS (4)
  - Pain [Not Recovered/Not Resolved]
  - Pain in extremity [Not Recovered/Not Resolved]
  - Hypoaesthesia [Not Recovered/Not Resolved]
  - Drug ineffective [Recovering/Resolving]

NARRATIVE: CASE EVENT DATE: 2015
